FAERS Safety Report 7074516-6 (Version None)
Quarter: 2010Q4

REPORT INFORMATION
  Report Type: 
  Country: None (occurrence: None)
  Receive Date: 20101029
  Receipt Date: 20101022
  Transmission Date: 20110411
  Serious: Yes (Other)
  Sender: FDA-Public Use
  Company Number: US-US-EMD SERONO, INC.-7013999

PATIENT
  Sex: Female
  Weight: 78 kg

DRUGS (11)
  1. REBIF [Suspect]
     Indication: RELAPSING-REMITTING MULTIPLE SCLEROSIS
     Route: 058
     Dates: start: 20100804, end: 20100101
  2. REBIF [Suspect]
     Route: 058
     Dates: start: 20100101, end: 20100101
  3. REBIF [Suspect]
     Route: 058
     Dates: start: 20100101
  4. IBUPROFEN [Concomitant]
     Indication: PREMEDICATION
  5. NAPROXEN [Concomitant]
     Indication: PREMEDICATION
     Dates: start: 20100801
  6. PROVERA [Concomitant]
     Route: 048
  7. PREVACID [Concomitant]
     Route: 048
  8. CLARITIN [Concomitant]
     Route: 048
  9. VENTOLIN HFA [Concomitant]
     Indication: WHEEZING
     Route: 055
  10. MOTRIN [Concomitant]
     Indication: PAIN
     Route: 048
  11. MOTRIN [Concomitant]
     Indication: PREMEDICATION

REACTIONS (11)
  - CENTRAL NERVOUS SYSTEM LESION [None]
  - HYPOAESTHESIA ORAL [None]
  - HYPOGEUSIA [None]
  - INJECTION SITE ERYTHEMA [None]
  - INJECTION SITE PAIN [None]
  - MUSCLE TIGHTNESS [None]
  - NAUSEA [None]
  - OPTIC NEURITIS [None]
  - SENSORY LOSS [None]
  - VERTIGO [None]
  - VOMITING [None]
